FAERS Safety Report 15703309 (Version 1)
Quarter: 2018Q4

REPORT INFORMATION
  Report Type: Spontaneous
  Country: JP (occurrence: JP)
  Receive Date: 20181210
  Receipt Date: 20181210
  Transmission Date: 20190205
  Serious: Yes (Death, Other)
  Sender: FDA-Public Use
  Company Number: JP-BRISTOL-MYERS SQUIBB COMPANY-BMS-2018-115790

PATIENT
  Age: 70 Year
  Sex: Male
  Weight: 54.7 kg

DRUGS (1)
  1. OPDIVO [Suspect]
     Active Substance: NIVOLUMAB
     Indication: HEAD AND NECK CANCER
     Dosage: 164.1 MG/DAY, (2017/10/30, 11/13, 12/01, 12/15, 2018/01/19, 02/09, 02/23)
     Route: 041
     Dates: start: 20171030, end: 20180223

REACTIONS (8)
  - Pruritus [Unknown]
  - Skin mass [Unknown]
  - Malignant neoplasm progression [Fatal]
  - Hypercalcaemia [Recovering/Resolving]
  - Gingival bleeding [Recovered/Resolved]
  - Malaise [Unknown]
  - Nail disorder [Recovered/Resolved]
  - Neuropathy peripheral [Recovering/Resolving]

NARRATIVE: CASE EVENT DATE: 20171106
